FAERS Safety Report 9693890 (Version 2)
Quarter: 2013Q4

REPORT INFORMATION
  Report Type: Spontaneous
  Country: US (occurrence: US)
  Receive Date: 20131118
  Receipt Date: 20131226
  Transmission Date: 20140711
  Serious: Yes (Other)
  Sender: FDA-Public Use
  Company Number: US-PFIZER INC-2013327881

PATIENT
  Age: 77 Year
  Sex: Male
  Weight: 90.25 kg

DRUGS (5)
  1. LYRICA [Suspect]
     Indication: NEURALGIA
     Dosage: 200 MG, 3X/DAY
  2. DONEPEZIL HCL [Suspect]
     Indication: NEURALGIA
     Dosage: UNK, 3X/DAY
     Dates: start: 201311
  3. DIOVAN [Concomitant]
     Dosage: UNK
  4. NORVASC [Concomitant]
     Dosage: UNK
  5. AMITRIPTYLINE [Concomitant]
     Dosage: 37.5 MG

REACTIONS (5)
  - Off label use [Unknown]
  - Drug dependence [Unknown]
  - Dementia [Unknown]
  - Diarrhoea [Unknown]
  - Neuralgia [Unknown]
